FAERS Safety Report 13656398 (Version 1)
Quarter: 2017Q2

REPORT INFORMATION
  Report Type: Spontaneous
  Country: US (occurrence: US)
  Receive Date: 20170615
  Receipt Date: 20170615
  Transmission Date: 20170830
  Serious: Yes (Hospitalization)
  Sender: FDA-Public Use
  Company Number: US-CELGENEUS-USA-20170603903

PATIENT
  Sex: Male

DRUGS (3)
  1. THALOMID [Suspect]
     Active Substance: THALIDOMIDE
     Dosage: 100 MILLIGRAM
     Route: 048
     Dates: start: 201501
  2. THALOMID [Suspect]
     Active Substance: THALIDOMIDE
     Indication: CAPILLARY DISORDER
     Dosage: 100 MILLIGRAM
     Route: 048
     Dates: start: 201303
  3. THALOMID [Suspect]
     Active Substance: THALIDOMIDE
     Dosage: 100 MILLIGRAM
     Route: 048
     Dates: start: 201510

REACTIONS (2)
  - Drug ineffective [Unknown]
  - Gastrointestinal haemorrhage [Unknown]
